FAERS Safety Report 7804814-7 (Version None)
Quarter: 2011Q4

REPORT INFORMATION
  Report Type: 
  Country: None (occurrence: None)
  Receive Date: 20111010
  Receipt Date: 20111002
  Transmission Date: 20120403
  Serious: Yes (Other)
  Sender: FDA-Public Use
  Company Number: IT-ROXANE LABORATORIES, INC.-2011-RO-01387RO

PATIENT
  Age: 19 Year
  Sex: Male

DRUGS (7)
  1. METHOTREXATE [Suspect]
     Indication: GRAFT VERSUS HOST DISEASE
  2. CYCLOPHOSPHAMIDE [Suspect]
     Indication: GRAFT VERSUS HOST DISEASE
  3. RITUXIMAB [Suspect]
     Indication: GRAFT VERSUS HOST DISEASE
  4. BUDESONIDE [Suspect]
     Indication: GRAFT VERSUS HOST DISEASE
  5. CYCLOSPORINE [Suspect]
     Indication: GRAFT VERSUS HOST DISEASE
  6. MYCOPHENOLATE MOFETIL [Suspect]
     Indication: GRAFT VERSUS HOST DISEASE
  7. IMATINIB MESYLATE [Suspect]
     Indication: GRAFT VERSUS HOST DISEASE

REACTIONS (3)
  - PROGRESSIVE MULTIFOCAL LEUKOENCEPHALOPATHY [None]
  - HUMAN POLYOMAVIRUS INFECTION [None]
  - JC VIRUS INFECTION [None]
